FAERS Safety Report 5647196-1 (Version None)
Quarter: 2008Q1

REPORT INFORMATION
  Report Type: 
  Country: None (occurrence: None)
  Receive Date: 20080228
  Receipt Date: 20080125
  Transmission Date: 20080703
  Serious: Yes (Death)
  Sender: FDA-Public Use
  Company Number: JPKYO-S-20080006

PATIENT
  Age: 67 Year
  Sex: Female

DRUGS (1)
  1. NAVELBINE [Suspect]
     Indication: BREAST CANCER RECURRENT
     Dosage: 0 MG/M2 QD IV
     Route: 042
     Dates: start: 20071002, end: 20071120

REACTIONS (5)
  - DISSEMINATED INTRAVASCULAR COAGULATION [None]
  - LEUKOPENIA [None]
  - METASTASES TO BONE [None]
  - RENAL FAILURE ACUTE [None]
  - THROMBOCYTOPENIA [None]
